FAERS Safety Report 13027893 (Version 1)
Quarter: 2016Q4

REPORT INFORMATION
  Report Type: Spontaneous
  Country: US (occurrence: US)
  Receive Date: 20161214
  Receipt Date: 20161214
  Transmission Date: 20170207
  Serious: Yes (Other)
  Sender: FDA-Public Use
  Company Number: US-PFIZER INC-2016571185

PATIENT

DRUGS (1)
  1. GABAPENTIN. [Suspect]
     Active Substance: GABAPENTIN
     Indication: SCAR
     Dosage: UNK

REACTIONS (4)
  - Stupor [Unknown]
  - Apparent death [Unknown]
  - Gangrene [Unknown]
  - Product use issue [Unknown]
